FAERS Safety Report 19084302 (Version 2)
Quarter: 2021Q2

REPORT INFORMATION
  Report Type: Report from Study
  Country: ES (occurrence: ES)
  Receive Date: 20210401
  Receipt Date: 20210507
  Transmission Date: 20210717
  Serious: Yes (Other)
  Sender: FDA-Public Use
  Company Number: ES-JNJFOC-20210353608

PATIENT

DRUGS (6)
  1. DUROGESIC MATRIX [Suspect]
     Active Substance: FENTANYL
     Dosage: 100 OR MORE MCG/HR
     Route: 065
  2. DUROGESIC MATRIX [Suspect]
     Active Substance: FENTANYL
     Indication: PAIN
     Route: 065
  3. DUROGESIC MATRIX [Suspect]
     Active Substance: FENTANYL
     Route: 065
  4. DUROGESIC MATRIX [Suspect]
     Active Substance: FENTANYL
     Route: 065
  5. DUROGESIC MATRIX [Suspect]
     Active Substance: FENTANYL
     Route: 065
  6. JURNISTA [Suspect]
     Active Substance: HYDROMORPHONE HYDROCHLORIDE
     Indication: PAIN
     Route: 065

REACTIONS (14)
  - Sedation [Unknown]
  - Hypotension [Unknown]
  - Seizure [Unknown]
  - Hyperhidrosis [Unknown]
  - Pruritus [Unknown]
  - Vomiting [Unknown]
  - Confusional state [Unknown]
  - Delirium [Unknown]
  - Hyperaesthesia [Unknown]
  - Constipation [Unknown]
  - Nausea [Unknown]
  - Drug abuse [Unknown]
  - Hallucination [Unknown]
  - Respiratory depression [Unknown]
